FAERS Safety Report 23846109 (Version 1)
Quarter: 2024Q2

REPORT INFORMATION
  Report Type: Spontaneous
  Country: US (occurrence: US)
  Receive Date: 20240512
  Receipt Date: 20240512
  Transmission Date: 20240716
  Serious: No
  Sender: FDA-Public Use
  Company Number: US-BRISTOL-MYERS SQUIBB COMPANY-2024-072566

PATIENT

DRUGS (1)
  1. ELIQUIS [Suspect]
     Active Substance: APIXABAN
     Indication: Product used for unknown indication
     Dates: start: 2023

REACTIONS (5)
  - Muscular weakness [Unknown]
  - Gait inability [Unknown]
  - Contusion [Unknown]
  - Fall [Unknown]
  - Dysgraphia [Unknown]
